FAERS Safety Report 4374862-0 (Version None)
Quarter: 2004Q2

REPORT INFORMATION
  Report Type: 
  Country: None (occurrence: None)
  Receive Date: 20040602
  Receipt Date: 20031001
  Transmission Date: 20050107
  Serious: Yes (Other)
  Sender: FDA-Public Use
  Company Number: US-JNJFOC-20031006423

PATIENT
  Age: 68 Year
  Sex: Female
  Weight: 85.7298 kg

DRUGS (4)
  1. PROPULSID [Suspect]
     Indication: GASTROOESOPHAGEAL REFLUX DISEASE
     Dates: start: 19941025
  2. PRILOSEC [Concomitant]
  3. EFFEXOR [Concomitant]
  4. REDUX [Concomitant]

REACTIONS (1)
  - ELECTROCARDIOGRAM QT PROLONGED [None]
